FAERS Safety Report 6099592-9 (Version None)
Quarter: 2009Q1

REPORT INFORMATION
  Report Type: 
  Country: None (occurrence: None)
  Receive Date: 20090226
  Receipt Date: 20090212
  Transmission Date: 20090719
  Serious: Yes (Death, Hospitalization)
  Sender: FDA-Public Use
  Company Number: DAV-AE-MTX-09-008

PATIENT
  Age: 55 Year
  Sex: Female

DRUGS (4)
  1. METHOTREXATE [Suspect]
     Indication: PAPILLOMA
     Dosage: 1 MG/KG
  2. ACYCLOVIR [Concomitant]
  3. RIBAVIRIN [Concomitant]
  4. INTERFERON [Concomitant]

REACTIONS (5)
  - INTESTINAL HAEMORRHAGE [None]
  - PAPILLOMA [None]
  - RESPIRATORY RATE INCREASED [None]
  - STENT OCCLUSION [None]
  - TRACHEAL OBSTRUCTION [None]
